FAERS Safety Report 8890885 (Version 2)
Quarter: 2013Q3

REPORT INFORMATION
  Report Type: Report from Study
  Country: MX (occurrence: MX)
  Receive Date: 20121107
  Receipt Date: 20130828
  Transmission Date: 20140515
  Serious: Yes (Death)
  Sender: FDA-Public Use
  Company Number: PHHY2012MX076187

PATIENT
  Age: 79 Year
  Sex: Male

DRUGS (1)
  1. ZOMETA [Suspect]
     Indication: OSTEOPOROSIS
     Dosage: 4 MG, ONCE A YEAR
     Route: 042
     Dates: start: 20120525, end: 201210

REACTIONS (3)
  - Death [Fatal]
  - Gait disturbance [Unknown]
  - Pain in extremity [Unknown]
